FAERS Safety Report 18467044 (Version 1)
Quarter: 2020Q4

REPORT INFORMATION
  Report Type: Spontaneous
  Country: US (occurrence: US)
  Receive Date: 20201105
  Receipt Date: 20201105
  Transmission Date: 20210114
  Serious: No
  Sender: FDA-Public Use
  Company Number: US-ACCORD-172519

PATIENT
  Sex: Male

DRUGS (1)
  1. HYDROCHLOROTHIAZIDE. [Suspect]
     Active Substance: HYDROCHLOROTHIAZIDE
     Indication: BENIGN PROSTATIC HYPERPLASIA
     Dosage: STRENGTH 12.5 MG ONCE A DAY
     Route: 048
     Dates: start: 20200208, end: 202002

REACTIONS (4)
  - Dizziness [Recovered/Resolved]
  - Pollakiuria [Recovered/Resolved]
  - Diarrhoea [Recovered/Resolved]
  - Headache [Recovered/Resolved]
